FAERS Safety Report 9204927 (Version 1)
Quarter: 2013Q1

REPORT INFORMATION
  Report Type: Spontaneous
  Country: US (occurrence: None)
  Receive Date: 20120709
  Receipt Date: 20120709
  Transmission Date: 20140127
  Serious: Yes (Hospitalization)
  Sender: FDA-Public Use
  Company Number: PHEH2012US000630

PATIENT
  Age: 64 Year
  Sex: Female

DRUGS (2)
  1. GLEEVEC [Suspect]
     Route: 048
  2. OMEPRAZOLE (OMEPRAZOLE) [Suspect]

REACTIONS (2)
  - Gastrooesophageal reflux disease [None]
  - Chest pain [None]
